FAERS Safety Report 6463121-8 (Version None)
Quarter: 2009Q4

REPORT INFORMATION
  Report Type: 
  Country: None (occurrence: None)
  Receive Date: 20091106
  Receipt Date: 20091022
  Transmission Date: 20100525
  Serious: Yes (Hospitalization, Other)
  Sender: FDA-Public Use
  Company Number: 20091022CINRY1213

PATIENT
  Age: 63 Year
  Sex: Male
  Weight: 128.7762 kg

DRUGS (21)
  1. CINRYZE [Suspect]
     Indication: HEREDITARY ANGIOEDEMA
     Dosage: (1000 UNIT,1 IN 7 D),INTRAVENOUS
     Route: 042
     Dates: start: 20090629
  2. CINRYZE [Suspect]
     Indication: PROPHYLAXIS
     Dosage: (1000 UNIT,1 IN 7 D),INTRAVENOUS
     Route: 042
     Dates: start: 20090629
  3. COUMADIN [Suspect]
     Indication: ATRIAL FIBRILLATION
     Dosage: 4 MG (4 MG,1 IN 1 D),ORAL ; ADJUSTED, HOWEVER SPECIFIC DOSE NOT REPORTED
     Route: 048
     Dates: start: 20080601, end: 20091001
  4. COUMADIN [Suspect]
     Indication: ATRIAL FIBRILLATION
     Dosage: 4 MG (4 MG,1 IN 1 D),ORAL ; ADJUSTED, HOWEVER SPECIFIC DOSE NOT REPORTED
     Route: 048
     Dates: end: 20091001
  5. ASPIRIN [Suspect]
     Indication: FLUSHING
     Dosage: 650 MG (325 MG,2 IN 1 D),ORAL ; (81 MG),ORAL
     Route: 048
     Dates: end: 20091001
  6. ASPIRIN [Suspect]
     Indication: FLUSHING
     Dosage: 650 MG (325 MG,2 IN 1 D),ORAL ; (81 MG),ORAL
     Route: 048
     Dates: end: 20091001
  7. AVAPRO [Suspect]
     Indication: HYPOTENSION
     Dosage: 150 MG (150 MG,1 IN 1 D),ORAL
     Route: 048
     Dates: end: 20091001
  8. NIASPAN [Concomitant]
  9. SYNTHROID [Concomitant]
  10. LASIX [Concomitant]
  11. POTASSIUM (POTASSIUM ) [Concomitant]
  12. IRON (IRON) [Concomitant]
  13. LOPID [Concomitant]
  14. LEVITRA [Concomitant]
  15. CARDIZEM [Concomitant]
  16. MULTIVITAMIN (MULTIVITAMIN /00831701/) [Concomitant]
  17. DIGOXIN [Concomitant]
  18. EPIPEN [Concomitant]
  19. B 12 (CYANOCOBALAMIN) [Concomitant]
  20. SONATA (CARISOPRODOL) [Concomitant]
  21. PRISTIQ [Concomitant]

REACTIONS (23)
  - ANAEMIA [None]
  - ASTHENIA [None]
  - BLOOD CREATININE INCREASED [None]
  - BLOOD UREA INCREASED [None]
  - BODY TEMPERATURE DECREASED [None]
  - CHEST DISCOMFORT [None]
  - CONDUCTION DISORDER [None]
  - DIVERTICULUM [None]
  - DRUG DOSE OMISSION [None]
  - DYSPNOEA EXERTIONAL [None]
  - EYE PAIN [None]
  - FAECES DISCOLOURED [None]
  - FALL [None]
  - GASTROOESOPHAGEAL REFLUX DISEASE [None]
  - HEADACHE [None]
  - INFUSION SITE HAEMATOMA [None]
  - INSOMNIA [None]
  - INTERNATIONAL NORMALISED RATIO INCREASED [None]
  - LOSS OF CONSCIOUSNESS [None]
  - MYOCARDIAL INFARCTION [None]
  - NAUSEA [None]
  - NODAL ARRHYTHMIA [None]
  - VENTRICULAR EXTRASYSTOLES [None]
